FAERS Safety Report 5741406-8 (Version None)
Quarter: 2008Q2

REPORT INFORMATION
  Report Type: 
  Country: None (occurrence: None)
  Receive Date: 20080514
  Receipt Date: 20080507
  Transmission Date: 20081010
  Serious: Yes (Other)
  Sender: FDA-Public Use
  Company Number: 2007SP014026

PATIENT
  Sex: Female

DRUGS (3)
  1. INTRON A [Suspect]
     Indication: ESSENTIAL THROMBOCYTHAEMIA
     Dosage: 0.6 MIU; QD
     Dates: start: 20061001, end: 20070711
  2. FRAGMIN [Concomitant]
  3. ASPIRIN [Concomitant]

REACTIONS (5)
  - AMNIOTIC FLUID VOLUME DECREASED [None]
  - DRUG EXPOSURE DURING PREGNANCY [None]
  - DRUG EXPOSURE VIA BREAST MILK [None]
  - PREGNANCY [None]
  - PREMATURE LABOUR [None]
